FAERS Safety Report 26116738 (Version 1)
Quarter: 2025Q4

REPORT INFORMATION
  Report Type: Spontaneous
  Country: GB (occurrence: GB)
  Receive Date: 20251203
  Receipt Date: 20251203
  Transmission Date: 20260119
  Serious: Yes (Congenital Anomaly, Other)
  Sender: BAYER HEALTHCARE LLC
  Company Number: None

PATIENT
  Age: 37 Year
  Sex: Female
  Weight: 80 kg

DRUGS (15)
  1. CLOTRIMAZOLE [Suspect]
     Active Substance: CLOTRIMAZOLE
     Indication: Vulvovaginal candidiasis
     Dosage: 200 MG AT NIGHT FOR 6 NIGHTS
     Dates: start: 20250804, end: 20250811
  2. POLYETHYLENE GLYCOL 3350 [Suspect]
     Active Substance: POLYETHYLENE GLYCOL 3350
     Indication: Constipation
     Dosage: 1-2 SACHETS DAILY
     Dates: start: 20250409
  3. LACTULOSE [Suspect]
     Active Substance: LACTULOSE
     Indication: Constipation
     Dosage: 2.5 ML, BID
     Dates: start: 20250409
  4. BECLOMETHASONE DIPROPIONATE [Suspect]
     Active Substance: BECLOMETHASONE DIPROPIONATE
     Indication: Adverse drug reaction
     Dosage: 200 ?G, BID
     Dates: start: 20240528
  5. DULOXETINE [Suspect]
     Active Substance: DULOXETINE
     Indication: Depression
     Dosage: 60 MG, QD
     Dates: start: 20230223
  6. MIRTAZAPINE [Suspect]
     Active Substance: MIRTAZAPINE
     Indication: Depression
     Dosage: 45 MG AT NIGHT
     Dates: start: 20220615
  7. QUETIAPINE [Suspect]
     Active Substance: QUETIAPINE
     Indication: Anxiety
     Dosage: 50 MG AT NIGHT
     Dates: start: 20150120
  8. VITAMIN D3 [Suspect]
     Active Substance: CHOLECALCIFEROL
     Indication: Pregnancy
     Dosage: 400 DF, QD
     Dates: start: 20250320
  9. ENOXAPARIN SODIUM [Suspect]
     Active Substance: ENOXAPARIN SODIUM
     Indication: Pregnancy with advanced maternal age
     Dosage: 40 MG,DAILY
     Dates: start: 20250514
  10. DISODIUM HYDROGEN CITRATE\SODIUM LAURYL SULFOACETATE\SORBIC ACID [Suspect]
     Active Substance: DISODIUM HYDROGEN CITRATE\SODIUM LAURYL SULFOACETATE\SORBIC ACID
     Indication: Constipation
     Dosage: 1 DF, PRN RECTALLY
     Dates: start: 20250807
  11. OMEPRAZOLE [Suspect]
     Active Substance: OMEPRAZOLE
     Dosage: 40MG DAILY
     Dates: start: 20240731
  12. SENNA [Suspect]
     Active Substance: SENNOSIDES
     Indication: Constipation
     Dosage: 15 MG, PRN AT NIGHT
     Dates: start: 20240731
  13. ALBUTEROL [Suspect]
     Active Substance: ALBUTEROL
     Indication: Adverse drug reaction
     Dosage: 2 PUFF(S), PRN
     Dates: start: 20240528
  14. AMOXICILLIN [Suspect]
     Active Substance: AMOXICILLIN
     Indication: Upper respiratory tract infection
     Dosage: 1 THREE TIMES A DAY  FOR 1 WEEK
     Dates: start: 20250925, end: 20251002
  15. FOLIC ACID [Concomitant]
     Active Substance: FOLIC ACID
     Indication: Vitamin supplementation

REACTIONS (2)
  - Maternal exposure during pregnancy [Unknown]
  - Cleft palate [Not Recovered/Not Resolved]

NARRATIVE: CASE EVENT DATE: 20251101
